FAERS Safety Report 16989442 (Version 2)
Quarter: 2019Q4

REPORT INFORMATION
  Report Type: Spontaneous
  Country: US (occurrence: US)
  Receive Date: 20191104
  Receipt Date: 20191111
  Transmission Date: 20200122
  Serious: No
  Sender: FDA-Public Use
  Company Number: US-PFIZER INC-2019470201

PATIENT
  Age: 61 Year
  Sex: Male
  Weight: 95.24 kg

DRUGS (2)
  1. CHANTIX [Suspect]
     Active Substance: VARENICLINE TARTRATE
     Dosage: 1 MG, UNK (FOR 3 WEEKS)
  2. CHANTIX [Suspect]
     Active Substance: VARENICLINE TARTRATE
     Indication: SMOKING CESSATION THERAPY
     Dosage: 0.5 MG, UNK (FOR 1 WEEK)

REACTIONS (6)
  - Breath odour [Unknown]
  - Diarrhoea [Not Recovered/Not Resolved]
  - Blood glucose increased [Unknown]
  - Asthenia [Not Recovered/Not Resolved]
  - Feeding disorder [Unknown]
  - Vomiting [Not Recovered/Not Resolved]

NARRATIVE: CASE EVENT DATE: 201910
